FAERS Safety Report 16897720 (Version 1)
Quarter: 2019Q4

REPORT INFORMATION
  Report Type: Report from Study
  Country: RO (occurrence: RO)
  Receive Date: 20191009
  Receipt Date: 20191009
  Transmission Date: 20200122
  Serious: Yes (Other)
  Sender: FDA-Public Use
  Company Number: RO-ROCHE-2429974

PATIENT
  Age: 60 Year
  Sex: Female
  Weight: 76 kg

DRUGS (3)
  1. TRASTUZUMAB. [Suspect]
     Active Substance: TRASTUZUMAB
     Indication: HER-2 POSITIVE BREAST CANCER
     Route: 058
     Dates: start: 20180628
  2. IBANDRONIC ACID. [Concomitant]
     Active Substance: IBANDRONIC ACID
     Route: 065
     Dates: start: 20180719, end: 20181217
  3. TAXOL [Suspect]
     Active Substance: PACLITAXEL
     Indication: HER-2 POSITIVE BREAST CANCER
     Route: 042
     Dates: start: 20180509

REACTIONS (1)
  - Hepatic failure [Not Recovered/Not Resolved]

NARRATIVE: CASE EVENT DATE: 20190114
